FAERS Safety Report 9698793 (Version 1)
Quarter: 2013Q4

REPORT INFORMATION
  Report Type: Spontaneous
  Country: JP (occurrence: JP)
  Receive Date: 20131120
  Receipt Date: 20131120
  Transmission Date: 20140711
  Serious: Yes (Hospitalization)
  Sender: FDA-Public Use
  Company Number: JP-ABBVIE-13P-087-1171088-00

PATIENT
  Age: 71 Year
  Sex: Male
  Weight: 63.9 kg

DRUGS (10)
  1. SEVOFRANE [Suspect]
     Indication: MAINTENANCE OF ANAESTHESIA
     Dosage: 1.6 - 2 %
     Route: 055
     Dates: start: 20121119, end: 20121119
  2. PROPOFOL [Concomitant]
     Indication: INDUCTION OF ANAESTHESIA
     Route: 042
     Dates: start: 20121119, end: 20121119
  3. FENTANYL [Concomitant]
     Indication: ANALGESIC THERAPY
     Route: 042
     Dates: start: 20121119, end: 20121119
  4. ESLAX [Concomitant]
     Indication: HYPOTONIA
     Dosage: 10 - 50 MG X 4
     Route: 042
     Dates: start: 20121119, end: 20121119
  5. XYLOCAINE [Concomitant]
     Indication: ANALGESIC THERAPY
     Route: 058
     Dates: start: 20121119, end: 20121119
  6. ANAPEINE [Concomitant]
     Indication: ANALGESIC THERAPY
     Dosage: 6 ML X 1, 8 ML X 1
     Route: 008
     Dates: start: 20121119, end: 20121119
  7. SIGMART [Concomitant]
     Indication: ANGINA PECTORIS
     Dosage: 4 MG/H
     Route: 042
     Dates: start: 20121119, end: 20121119
  8. BRIDION [Concomitant]
     Indication: NEUROMUSCULAR BLOCKADE REVERSAL
     Dosage: 100 MG X 2
     Route: 042
     Dates: start: 20121119, end: 20121119
  9. RASENAZOLIN [Concomitant]
     Indication: INFECTION PROPHYLAXIS
     Route: 042
     Dates: start: 20121119, end: 20121119
  10. ANAPEINE [Concomitant]
     Indication: ANALGESIC THERAPY
     Dosage: 4 ML/H
     Route: 008
     Dates: start: 20121119, end: 20121119

REACTIONS (1)
  - Interstitial lung disease [Recovering/Resolving]
